FAERS Safety Report 24424140 (Version 1)
Quarter: 2024Q4

REPORT INFORMATION
  Report Type: Spontaneous
  Country: US (occurrence: US)
  Receive Date: 20241010
  Receipt Date: 20241010
  Transmission Date: 20250114
  Serious: No
  Sender: PFIZER
  Company Number: US-PFIZER INC-PV202400130804

PATIENT
  Age: 76 Year
  Sex: Female

DRUGS (1)
  1. NURTEC ODT [Suspect]
     Active Substance: RIMEGEPANT SULFATE
     Indication: Migraine
     Dosage: 1 DF, AS NEEDED DISSOLVE 1 TABLET ON TONGUE AT MIGRAINE ONSET)
     Route: 048

REACTIONS (1)
  - Cognitive disorder [Unknown]
